FAERS Safety Report 6812524-8 (Version None)
Quarter: 2010Q3

REPORT INFORMATION
  Report Type: 
  Country: None (occurrence: None)
  Receive Date: 20100701
  Receipt Date: 20100622
  Transmission Date: 20110219
  Serious: Yes (Hospitalization, Other)
  Sender: FDA-Public Use
  Company Number: US-PFIZER INC-2010063634

PATIENT
  Age: 49 Year
  Sex: Female
  Weight: 79.82 kg

DRUGS (5)
  1. GEODON [Suspect]
     Indication: MAJOR DEPRESSION
     Dosage: 60 MG, 2X/DAY
     Route: 048
     Dates: end: 20100428
  2. GEODON [Suspect]
     Dates: end: 20100428
  3. TRAZODONE [Suspect]
     Dosage: UNIT DOSE: 50
     Dates: start: 20100428, end: 20100520
  4. EFFEXOR [Suspect]
     Dosage: UNIT DOSE: 75
     Dates: start: 20100428, end: 20100520
  5. SEROQUEL [Suspect]
     Dosage: UNIT DOSE: 200
     Dates: start: 20100428

REACTIONS (6)
  - DEPRESSION [None]
  - DYSKINESIA [None]
  - GAIT DISTURBANCE [None]
  - PSYCHOMOTOR HYPERACTIVITY [None]
  - PSYCHOTIC DISORDER [None]
  - TORTICOLLIS [None]
